FAERS Safety Report 12106489 (Version 2)
Quarter: 2016Q2

REPORT INFORMATION
  Report Type: Spontaneous
  Country: US (occurrence: US)
  Receive Date: 20160223
  Receipt Date: 20160401
  Transmission Date: 20160815
  Serious: Yes (Death)
  Sender: FDA-Public Use
  Company Number: US-INCYTE CORPORATION-2016IN001069

PATIENT

DRUGS (3)
  1. JAKAFI [Suspect]
     Active Substance: RUXOLITINIB
     Dosage: 1 TAB ALTERNATING WITH 2 TABS DAILY
     Route: 048
  2. JAKAFI [Suspect]
     Active Substance: RUXOLITINIB
     Indication: MYELOFIBROSIS
     Dosage: 1 TABLET ONCE DAILY
     Route: 048
  3. JAKAFI [Suspect]
     Active Substance: RUXOLITINIB
     Dosage: BID
     Route: 048

REACTIONS (2)
  - Splenomegaly [Unknown]
  - Hepatocellular carcinoma [Fatal]

NARRATIVE: CASE EVENT DATE: 20160205
